FAERS Safety Report 14409239 (Version 2)
Quarter: 2018Q2

REPORT INFORMATION
  Report Type: Report from Study
  Country: None (occurrence: CA)
  Receive Date: 20180119
  Receipt Date: 20180404
  Transmission Date: 20180711
  Serious: Yes (Hospitalization, Other)
  Sender: FDA-Public Use
  Company Number: CA-ABBVIE-18K-028-2224209-00

PATIENT
  Age: 60 Year
  Sex: Female

DRUGS (1)
  1. HUMIRA [Suspect]
     Active Substance: ADALIMUMAB
     Indication: PSORIATIC ARTHROPATHY
     Route: 058
     Dates: start: 20100416, end: 20171205

REACTIONS (9)
  - Pain in extremity [Not Recovered/Not Resolved]
  - Intestinal stenosis [Recovering/Resolving]
  - Post procedural complication [Recovering/Resolving]
  - Post procedural fistula [Recovering/Resolving]
  - Abdominal adhesions [Unknown]
  - Intestinal perforation [Recovering/Resolving]
  - Psoriatic arthropathy [Not Recovered/Not Resolved]
  - Stoma site abscess [Not Recovered/Not Resolved]
  - Back pain [Not Recovered/Not Resolved]

NARRATIVE: CASE EVENT DATE: 201712
